FAERS Safety Report 12059827 (Version 1)
Quarter: 2016Q1

REPORT INFORMATION
  Report Type: Other
  Country: ES (occurrence: ES)
  Receive Date: 20160210
  Receipt Date: 20160210
  Transmission Date: 20160526
  Serious: Yes (Other)
  Sender: FDA-Public Use
  Company Number: ES-APOTEX-2016AP006247

PATIENT
  Age: 36 Year
  Sex: Female
  Weight: 61 kg

DRUGS (3)
  1. PARACETAMOL, TRAMADOL [Suspect]
     Active Substance: ACETAMINOPHEN\TRAMADOL
     Indication: HEADACHE
     Dosage: 1 TABLET / 3 TIMES PER DAY. IN CASE OF SEVERE PAIN INCREASE DOSAGE TO 2 TABLETS
     Route: 048
     Dates: start: 20151120
  2. PARACETAMOL, TRAMADOL [Suspect]
     Active Substance: ACETAMINOPHEN\TRAMADOL
     Indication: NECK PAIN
  3. DIAZEPAM. [Concomitant]
     Active Substance: DIAZEPAM
     Indication: PRODUCT USED FOR UNKNOWN INDICATION
     Dosage: 2.5 MG, UNK
     Route: 065

REACTIONS (10)
  - Insomnia [Not Recovered/Not Resolved]
  - Restlessness [Unknown]
  - Nightmare [Unknown]
  - Tachycardia [Unknown]
  - Dyspnoea [Unknown]
  - Nervousness [Not Recovered/Not Resolved]
  - Vision blurred [Unknown]
  - Chest pain [Unknown]
  - Choking sensation [Not Recovered/Not Resolved]
  - Dysphagia [Unknown]

NARRATIVE: CASE EVENT DATE: 20160120
